FAERS Safety Report 4366172-2 (Version None)
Quarter: 2004Q2

REPORT INFORMATION
  Report Type: 
  Country: None (occurrence: None)
  Receive Date: 20040526
  Receipt Date: 20040526
  Transmission Date: 20050107
  Serious: Yes (Other)
  Sender: FDA-Public Use
  Company Number: None

PATIENT
  Age: 75 Year
  Sex: Male
  Weight: 89.8 kg

DRUGS (7)
  1. TERAZOSIN HCL [Suspect]
  2. FINASTERIDE [Concomitant]
  3. SYNTHROID [Concomitant]
  4. PAROXETINE HCL [Concomitant]
  5. ZOLPIDEM TARTRATE [Concomitant]
  6. SIMVASTATIN [Concomitant]
  7. CAPSAICIN [Concomitant]

REACTIONS (1)
  - DIZZINESS [None]
